FAERS Safety Report 6954729-1 (Version None)
Quarter: 2010Q3

REPORT INFORMATION
  Report Type: 
  Country: None (occurrence: None)
  Receive Date: 20100829
  Receipt Date: 20090901
  Transmission Date: 20110219
  Serious: No
  Sender: FDA-Public Use
  Company Number: US-ALLERGAN-0912210US

PATIENT
  Sex: Female

DRUGS (3)
  1. ACULAR LS [Suspect]
     Indication: EYELID PAIN
     Dosage: UNK
     Route: 047
  2. ACULAR LS [Suspect]
     Indication: DRY SKIN
  3. ACULAR LS [Suspect]
     Indication: FOREIGN BODY SENSATION IN EYES

REACTIONS (1)
  - DRUG INEFFECTIVE [None]
